FAERS Safety Report 8574866-8 (Version None)
Quarter: 2012Q3

REPORT INFORMATION
  Report Type: 
  Country: None (occurrence: None)
  Receive Date: 20120807
  Receipt Date: 20110512
  Transmission Date: 20120928
  Serious: Yes (Death, Hospitalization, Other)
  Sender: FDA-Public Use
  Company Number: DE-CELGENEUS-062-50794-12052836

PATIENT
  Age: 71 Year
  Sex: Male
  Weight: 71.9 kg

DRUGS (2)
  1. RED BLOOD CELLS [Concomitant]
     Route: 041
     Dates: start: 20100930
  2. VIDAZA [Suspect]
     Indication: CHRONIC MYELOMONOCYTIC LEUKAEMIA
     Dosage: 75 MILLIGRAM/SQ. METER
     Route: 058
     Dates: start: 20100927, end: 20101117

REACTIONS (11)
  - BLOOD CREATININE INCREASED [None]
  - ACUTE MYELOID LEUKAEMIA [None]
  - GENERAL PHYSICAL HEALTH DETERIORATION [None]
  - GINGIVAL BLEEDING [None]
  - RENAL FAILURE ACUTE [None]
  - PLATELET COUNT DECREASED [None]
  - HAEMOGLOBIN DECREASED [None]
  - FATIGUE [None]
  - MOUTH HAEMORRHAGE [None]
  - SEPSIS [None]
  - NAUSEA [None]
